FAERS Safety Report 6074007-5 (Version None)
Quarter: 2009Q1

REPORT INFORMATION
  Report Type: 
  Country: None (occurrence: None)
  Receive Date: 20090211
  Receipt Date: 20090205
  Transmission Date: 20090719
  Serious: Yes (Hospitalization)
  Sender: FDA-Public Use
  Company Number: CA-ABBOTT-09P-028-0501904-00

PATIENT
  Sex: Female

DRUGS (1)
  1. SYNTHROID [Suspect]
     Indication: THYROIDECTOMY
     Dates: start: 20090109

REACTIONS (5)
  - ANXIETY [None]
  - CHEST PAIN [None]
  - DYSKINESIA [None]
  - HEART RATE INCREASED [None]
  - HYPERTENSION [None]
